FAERS Safety Report 6801445-2 (Version None)
Quarter: 2010Q2

REPORT INFORMATION
  Report Type: 
  Country: None (occurrence: None)
  Receive Date: 20100629
  Receipt Date: 20100623
  Transmission Date: 20101027
  Serious: Yes (Life-Threatening, Hospitalization)
  Sender: FDA-Public Use
  Company Number: US-ROCHE-709491

PATIENT
  Sex: Female
  Weight: 59.7 kg

DRUGS (20)
  1. TOCILIZUMAB [Suspect]
     Indication: RHEUMATOID ARTHRITIS
     Route: 042
     Dates: start: 20090421
  2. TOCILIZUMAB [Suspect]
     Route: 042
     Dates: start: 20100216
  3. TOCILIZUMAB [Suspect]
     Route: 042
     Dates: start: 20100315
  4. TOCILIZUMAB [Suspect]
     Route: 042
     Dates: start: 20100415
  5. TOCILIZUMAB [Suspect]
     Dosage: THERAPY TEMPORARILY INTERRUPTED
     Route: 042
     Dates: start: 20100517, end: 20100609
  6. METHOTREXATE SODIUM [Suspect]
     Indication: RHEUMATOID ARTHRITIS
     Route: 048
     Dates: start: 19990101, end: 20100420
  7. METHOTREXATE SODIUM [Suspect]
     Dosage: LAST DATE PRIOR TO SAE: 06 JUNE 2010
     Route: 048
     Dates: start: 20090421
  8. FLUOXETINE [Concomitant]
     Indication: DEPRESSION
     Route: 048
     Dates: start: 20000101
  9. ACETAMINOPHEN [Concomitant]
     Dosage: DRUG NAME: ACETAMINOPHEN W/CODEINE, TDD: 2 TABLETS  PRN
     Route: 048
     Dates: start: 20081101
  10. PRILOSEC [Concomitant]
     Route: 048
     Dates: start: 20081101
  11. SIMVASTATIN [Concomitant]
     Route: 048
     Dates: start: 20070101
  12. PREDNISONE [Concomitant]
     Route: 048
     Dates: start: 19990101
  13. METHYLPHENIDATE [Concomitant]
     Indication: FATIGUE
     Route: 048
     Dates: start: 20081001
  14. VITAMIN C [Concomitant]
     Route: 048
     Dates: start: 20020101
  15. ZINC [Concomitant]
     Route: 048
     Dates: start: 20020101
  16. COD-LIVER OIL [Concomitant]
     Route: 048
     Dates: start: 20020101
  17. FOLIC ACID [Concomitant]
     Route: 048
     Dates: start: 19990101
  18. ATENOLOL [Concomitant]
     Indication: HYPERTENSION
     Route: 048
     Dates: start: 20070101, end: 20100501
  19. ATENOLOL [Concomitant]
     Route: 048
     Dates: start: 20100502
  20. KENALOG [Concomitant]
     Dosage: ROUTE: IA
     Route: 014
     Dates: start: 20091215, end: 20091215

REACTIONS (1)
  - MYOCARDIAL INFARCTION [None]
